FAERS Safety Report 13366697 (Version 2)
Quarter: 2017Q3

REPORT INFORMATION
  Report Type: Spontaneous
  Country: CH (occurrence: CH)
  Receive Date: 20170324
  Receipt Date: 20170803
  Transmission Date: 20171127
  Serious: Yes (Other)
  Sender: FDA-Public Use
  Company Number: CH-TEVA-750936ISR

PATIENT
  Age: 37 Year
  Sex: Female

DRUGS (8)
  1. TRAMAL [Suspect]
     Active Substance: TRAMADOL
     Route: 048
     Dates: start: 20170226, end: 20170301
  2. CLEXANE [Concomitant]
     Active Substance: ENOXAPARIN SODIUM
     Route: 058
     Dates: start: 20170226
  3. FLUOXETINE [Concomitant]
     Active Substance: FLUOXETINE HYDROCHLORIDE
     Route: 048
  4. GABAPENTIN. [Concomitant]
     Active Substance: GABAPENTIN
     Route: 048
  5. CO-AMOXI [Suspect]
     Active Substance: AMOXICILLIN\CLAVULANATE POTASSIUM
     Route: 041
     Dates: start: 20170226, end: 20170226
  6. DAFALGAN [Suspect]
     Active Substance: ACETAMINOPHEN
     Route: 048
     Dates: start: 20170226, end: 20170226
  7. CLINDAMYCIN. [Concomitant]
     Active Substance: CLINDAMYCIN
     Route: 041
     Dates: start: 20170227
  8. MORPHIN [Concomitant]
     Active Substance: MORPHINE
     Route: 048
     Dates: start: 20170301

REACTIONS (5)
  - Gamma-glutamyltransferase increased [Recovered/Resolved]
  - Liver injury [Recovered/Resolved]
  - Aspartate aminotransferase increased [Recovered/Resolved]
  - Blood alkaline phosphatase increased [Recovered/Resolved]
  - Alanine aminotransferase increased [Recovered/Resolved]

NARRATIVE: CASE EVENT DATE: 20170226
